FAERS Safety Report 16752267 (Version 1)
Quarter: 2019Q3

REPORT INFORMATION
  Report Type: Report from Study
  Country: AU (occurrence: AU)
  Receive Date: 20190828
  Receipt Date: 20190828
  Transmission Date: 20191005
  Serious: Yes (Hospitalization)
  Sender: FDA-Public Use
  Company Number: AU-GLAXOSMITHKLINE-AU2019GSK154189

PATIENT
  Sex: Female
  Weight: 53 kg

DRUGS (3)
  1. INFLUENZA VACCINE [Concomitant]
     Active Substance: INFLUENZA VIRUS VACCINE
     Indication: PROPHYLAXIS
  2. SALBUTAMOL SULPHATE [Suspect]
     Active Substance: ALBUTEROL SULFATE
     Indication: CHRONIC OBSTRUCTIVE PULMONARY DISEASE
     Dosage: 100 UG, UNK
  3. SYMBICORT [Suspect]
     Active Substance: BUDESONIDE\FORMOTEROL FUMARATE DIHYDRATE
     Indication: CHRONIC OBSTRUCTIVE PULMONARY DISEASE
     Dosage: UNK (100/6-200/6-400/12)

REACTIONS (6)
  - Incorrect dose administered [Unknown]
  - Wheezing [Unknown]
  - Chronic obstructive pulmonary disease [Unknown]
  - Therapeutic product effect incomplete [Not Recovered/Not Resolved]
  - Dyspnoea [Unknown]
  - Wrong technique in product usage process [Not Recovered/Not Resolved]
